FAERS Safety Report 7973807-1 (Version None)
Quarter: 2011Q4

REPORT INFORMATION
  Report Type: 
  Country: None (occurrence: None)
  Receive Date: 20111213
  Receipt Date: 20111201
  Transmission Date: 20120403
  Serious: Yes (Death, Other)
  Sender: FDA-Public Use
  Company Number: DE-ELI_LILLY_AND_COMPANY-DE201112000439

PATIENT
  Age: 26 Year
  Sex: Female

DRUGS (3)
  1. ANTIBIOTICS [Concomitant]
  2. ZYPREXA [Suspect]
     Dosage: 10 MG, BID
     Route: 048
  3. ZYPREXA [Suspect]
     Dosage: 10 MG, UNK

REACTIONS (4)
  - HYPOXIC-ISCHAEMIC ENCEPHALOPATHY [None]
  - HYPONATRAEMIA [None]
  - HYPOKALAEMIA [None]
  - DEATH [None]
